FAERS Safety Report 8914752 (Version 1)
Quarter: 2012Q4

REPORT INFORMATION
  Report Type: 
  Country: SI (occurrence: SI)
  Receive Date: 20121119
  Receipt Date: 20121119
  Transmission Date: 20130627
  Serious: Yes (Death)
  Sender: FDA-Public Use
  Company Number: SI-ASTRAZENECA-2012SE86825

PATIENT
  Age: 24827 Day
  Sex: Male

DRUGS (5)
  1. BRILIQUE [Suspect]
     Indication: PERCUTANEOUS CORONARY INTERVENTION
     Route: 048
     Dates: start: 20121028
  2. ASPIRIN PROTECT [Concomitant]
     Indication: PERCUTANEOUS CORONARY INTERVENTION
     Route: 048
  3. ASPIRIN PROTECT [Concomitant]
     Indication: CORONARY ARTERY DISEASE
     Route: 048
  4. PRENESSA [Concomitant]
     Indication: CORONARY ARTERY DISEASE
     Route: 048
  5. PRENESSA [Concomitant]
     Indication: HYPERTENSION
     Route: 048

REACTIONS (2)
  - Thrombosis in device [Fatal]
  - Drug dose omission [Fatal]
